FAERS Safety Report 11639807 (Version 1)
Quarter: 2015Q4

REPORT INFORMATION
  Report Type: Spontaneous
  Country: PL (occurrence: PL)
  Receive Date: 20151019
  Receipt Date: 20151019
  Transmission Date: 20160304
  Serious: Yes (Other)
  Sender: FDA-Public Use
  Company Number: PL-ACCORD-034567

PATIENT
  Age: 63 Year
  Sex: Male

DRUGS (1)
  1. GEMCITABINE/GEMCITABINE HYDROCHLORIDE [Suspect]
     Active Substance: GEMCITABINE\GEMCITABINE HYDROCHLORIDE
     Indication: RENAL CELL CARCINOMA

REACTIONS (4)
  - Off label use [Unknown]
  - Nephropathy toxic [Unknown]
  - Renal cell carcinoma [None]
  - Malignant neoplasm progression [None]
